FAERS Safety Report 5586320-6 (Version None)
Quarter: 2008Q1

REPORT INFORMATION
  Report Type: 
  Country: None (occurrence: None)
  Receive Date: 20080110
  Receipt Date: 20080107
  Transmission Date: 20080703
  Serious: Yes (Other)
  Sender: FDA-Public Use
  Company Number: GB-JNJFOC-20080101315

PATIENT
  Sex: Male
  Weight: 85 kg

DRUGS (4)
  1. REMICADE [Suspect]
     Indication: RHEUMATOID ARTHRITIS
     Route: 042
  2. CO-PROXAMOL [Concomitant]
  3. MYOCRISIN [Concomitant]
  4. VOLTAREN [Concomitant]

REACTIONS (1)
  - PROSTATE CANCER [None]
